FAERS Safety Report 11279043 (Version 1)
Quarter: 2015Q3

REPORT INFORMATION
  Report Type: Report from Study
  Country: DE (occurrence: DE)
  Receive Date: 20150717
  Receipt Date: 20150717
  Transmission Date: 20151125
  Serious: Yes (Hospitalization)
  Sender: FDA-Public Use
  Company Number: DE-CELGENE-062-21660-14053094

PATIENT
  Sex: Female
  Weight: 73 kg

DRUGS (2)
  1. ABRAXANE [Suspect]
     Active Substance: PACLITAXEL
     Indication: BREAST CANCER
     Dosage: 225 MILLIGRAM
     Route: 041
     Dates: start: 20140423
  2. GEMCITABINE [Suspect]
     Active Substance: GEMCITABINE\GEMCITABINE HYDROCHLORIDE
     Indication: BREAST CANCER
     Dosage: 1800 MILLIGRAM
     Route: 041
     Dates: start: 20140423

REACTIONS (1)
  - Abscess [Recovered/Resolved]

NARRATIVE: CASE EVENT DATE: 20140515
